FAERS Safety Report 6677978-9 (Version None)
Quarter: 2010Q2

REPORT INFORMATION
  Report Type: 
  Country: None (occurrence: None)
  Receive Date: 20100412
  Receipt Date: 20100404
  Transmission Date: 20101027
  Serious: Yes (Hospitalization)
  Sender: FDA-Public Use
  Company Number: US-GILEAD-2010-0028327

PATIENT
  Sex: Female
  Weight: 77.18 kg

DRUGS (18)
  1. LETAIRIS [Suspect]
     Indication: PULMONARY ARTERIAL HYPERTENSION
     Route: 048
  2. TYVASO [Concomitant]
  3. REVATIO [Concomitant]
  4. CARTIA XT [Concomitant]
  5. METHOTREXATE [Concomitant]
  6. PREDNISOLONE [Concomitant]
  7. XOPENOX [Concomitant]
  8. FLONASE [Concomitant]
  9. LUMIGAN [Concomitant]
  10. ALPHAGAN [Concomitant]
  11. PROTONIX [Concomitant]
  12. DARVOCET [Concomitant]
  13. STARLIX [Concomitant]
  14. ROBITUSSIN [Concomitant]
  15. FOLIC ACID [Concomitant]
  16. CALCIUM-D [Concomitant]
  17. MAG-OXIDE [Concomitant]
  18. ASPIRIN [Concomitant]

REACTIONS (5)
  - CHEST DISCOMFORT [None]
  - DIZZINESS [None]
  - DYSPNOEA [None]
  - PALPITATIONS [None]
  - PYREXIA [None]
